FAERS Safety Report 8255022-X (Version None)
Quarter: 2012Q2

REPORT INFORMATION
  Report Type: 
  Country: None (occurrence: None)
  Receive Date: 20120403
  Receipt Date: 20120327
  Transmission Date: 20120825
  Serious: Yes (Hospitalization)
  Sender: FDA-Public Use
  Company Number: DE-BAYER-2012-029858

PATIENT
  Sex: Male

DRUGS (2)
  1. NAPROXEN SODIUM [Suspect]
     Indication: RHEUMATOID ARTHRITIS
     Dosage: 20 MG, QD
     Route: 048
     Dates: start: 20060101, end: 20110101
  2. ARAVA [Suspect]
     Indication: RHEUMATOID ARTHRITIS
     Dosage: 20 MG, QD
     Route: 048
     Dates: start: 20060101, end: 20110101

REACTIONS (6)
  - FATIGUE [None]
  - DIARRHOEA [None]
  - RENAL FAILURE ACUTE [None]
  - PYREXIA [None]
  - DEHYDRATION [None]
  - ASTHENIA [None]
